FAERS Safety Report 16043534 (Version 2)
Quarter: 2019Q2

REPORT INFORMATION
  Report Type: Spontaneous
  Country: US (occurrence: US)
  Receive Date: 20190306
  Receipt Date: 20190415
  Transmission Date: 20190711
  Serious: Yes (Hospitalization, Other)
  Sender: FDA-Public Use
  Company Number: US-NAPPMUNDI-USA-2019-0146257

PATIENT
  Sex: Female

DRUGS (4)
  1. DILAUDID [Suspect]
     Active Substance: HYDROMORPHONE HYDROCHLORIDE
     Indication: PAIN
  2. LYRICA [Concomitant]
     Active Substance: PREGABALIN
     Indication: EAR PAIN
     Dosage: UNK
     Route: 065
  3. DILAUDID [Suspect]
     Active Substance: HYDROMORPHONE HYDROCHLORIDE
     Indication: EAR PAIN
     Dosage: 2 MG, 1-3 TIMES DAILY
     Route: 048
     Dates: start: 2013
  4. DILAUDID [Suspect]
     Active Substance: HYDROMORPHONE HYDROCHLORIDE
     Indication: TEMPOROMANDIBULAR JOINT SYNDROME

REACTIONS (5)
  - Hospitalisation [Unknown]
  - Abdominal discomfort [Unknown]
  - Herpes zoster [Unknown]
  - Disability [Unknown]
  - Somnolence [Unknown]
